FAERS Safety Report 7806471-2 (Version None)
Quarter: 2011Q4

REPORT INFORMATION
  Report Type: 
  Country: None (occurrence: None)
  Receive Date: 20111007
  Receipt Date: 20111007
  Transmission Date: 20120403
  Serious: Yes (Death, Life-Threatening)
  Sender: FDA-Public Use
  Company Number: None

PATIENT
  Age: 64 Year
  Sex: Male
  Weight: 136 kg

DRUGS (1)
  1. HALOPERIDOL [Suspect]
     Indication: AGITATION
     Dosage: HALDOL 4MG Q4H IV
     Route: 042
     Dates: start: 20110922, end: 20110923

REACTIONS (7)
  - SEPSIS [None]
  - DRUG WITHDRAWAL SYNDROME [None]
  - NEUROLEPTIC MALIGNANT SYNDROME [None]
  - CARDIO-RESPIRATORY ARREST [None]
  - AGITATION [None]
  - PNEUMONIA ASPIRATION [None]
  - CONDITION AGGRAVATED [None]
